FAERS Safety Report 17665416 (Version 1)
Quarter: 2020Q2

REPORT INFORMATION
  Report Type: Spontaneous
  Country: US (occurrence: US)
  Receive Date: 20200414
  Receipt Date: 20200414
  Transmission Date: 20200713
  Serious: Yes (Other)
  Sender: FDA-Public Use
  Company Number: US-VERTEX PHARMACEUTICALS-2020-008542

PATIENT
  Sex: Male

DRUGS (4)
  1. PREDNISONE. [Suspect]
     Active Substance: PREDNISONE
     Dosage: 20 MG
     Route: 065
  2. PREDNISONE. [Suspect]
     Active Substance: PREDNISONE
     Dosage: 10 MG
     Route: 065
  3. PREDNISONE. [Suspect]
     Active Substance: PREDNISONE
     Indication: PRODUCT USED FOR UNKNOWN INDICATION
     Dosage: 30 MG
     Route: 065
  4. TRIKAFTA [Suspect]
     Active Substance: ELEXACAFTOR\IVACAFTOR\TEZACAFTOR
     Indication: CYSTIC FIBROSIS
     Dosage: 100MG ELEXACAFTOR/ 50MG TEZACAFTOR/150MG IVACAFTOR AND 50MG IIVACAFTOR, FREQ UNK
     Route: 048
     Dates: start: 20191101

REACTIONS (1)
  - Oxygen saturation decreased [Not Recovered/Not Resolved]

NARRATIVE: CASE EVENT DATE: 2020
